FAERS Safety Report 15758582 (Version 4)
Quarter: 2019Q1

REPORT INFORMATION
  Report Type: Spontaneous
  Country: GB (occurrence: GB)
  Receive Date: 20181225
  Receipt Date: 20190129
  Transmission Date: 20190417
  Serious: Yes (Hospitalization, Other)
  Sender: FDA-Public Use
  Company Number: PHHY2018GB193623

PATIENT
  Age: 49 Year
  Sex: Female

DRUGS (1)
  1. IMATINIB. [Suspect]
     Active Substance: IMATINIB MESYLATE
     Indication: GASTROINTESTINAL STROMAL TUMOUR
     Dosage: 400 MG, QD
     Route: 065

REACTIONS (11)
  - Hepatotoxicity [Recovered/Resolved]
  - Nausea [Recovering/Resolving]
  - Transaminases increased [Unknown]
  - Eosinophilia [Unknown]
  - Hepatocellular injury [Recovered/Resolved]
  - Off label use [Unknown]
  - Interstitial lung disease [Recovering/Resolving]
  - Jaundice [Unknown]
  - Fatigue [Recovering/Resolving]
  - Liver injury [Unknown]
  - Weight decreased [Recovering/Resolving]
